FAERS Safety Report 7626118-8 (Version None)
Quarter: 2011Q3

REPORT INFORMATION
  Report Type: 
  Country: None (occurrence: None)
  Receive Date: 20110721
  Receipt Date: 20110713
  Transmission Date: 20111222
  Serious: Yes (Hospitalization)
  Sender: FDA-Public Use
  Company Number: US-BAXTER-2011BH022763

PATIENT
  Sex: Female

DRUGS (2)
  1. MUSCLE RELAXANT [Suspect]
     Indication: MUSCLE RELAXANT THERAPY
     Route: 065
  2. DIANEAL [Suspect]
     Indication: PERITONEAL DIALYSIS
     Route: 033
     Dates: start: 20070101

REACTIONS (1)
  - MUSCLE SPASMS [None]
